FAERS Safety Report 6344698-X (Version None)
Quarter: 2009Q3

REPORT INFORMATION
  Report Type: 
  Country: None (occurrence: None)
  Receive Date: 20090908
  Receipt Date: 20090901
  Transmission Date: 20100115
  Serious: Yes (Hospitalization)
  Sender: FDA-Public Use
  Company Number: US-GILEAD-2009-0023968

PATIENT
  Sex: Male
  Weight: 161.17 kg

DRUGS (8)
  1. LETAIRIS [Suspect]
     Indication: PULMONARY ARTERIAL HYPERTENSION
     Route: 048
     Dates: start: 20090416
  2. BUMEX [Concomitant]
  3. SINGULAIR [Concomitant]
  4. COMBIVENT [Concomitant]
  5. DUONEB [Concomitant]
  6. ASPIRIN [Concomitant]
  7. HYDROCODONE BITARTRATE AND ACETAMINOPHEN [Concomitant]
  8. XANAX [Concomitant]

REACTIONS (1)
  - UNEVALUABLE EVENT [None]
